FAERS Safety Report 4821997-1 (Version None)
Quarter: 2005Q4

REPORT INFORMATION
  Report Type: 
  Country: None (occurrence: None)
  Receive Date: 20051107
  Receipt Date: 20051028
  Transmission Date: 20060501
  Serious: No
  Sender: FDA-Public Use
  Company Number: JP-JNJFOC-20051004314

PATIENT
  Age: 56 Year
  Sex: Male

DRUGS (6)
  1. RISPERDAL [Suspect]
     Route: 048
  2. RISPERDAL [Suspect]
     Route: 048
  3. RISPERDAL [Suspect]
     Indication: DRUG USE FOR UNKNOWN INDICATION
     Route: 048
  4. PROMETHAZINE HCL [Concomitant]
     Route: 048
  5. CHLORPROMAZINE HIBENZATE [Concomitant]
     Route: 048
  6. MAZATICOL HYDROCHLORIDE [Concomitant]
     Route: 048

REACTIONS (3)
  - HYPOKALAEMIA [None]
  - NO ADVERSE DRUG EFFECT [None]
  - PANCYTOPENIA [None]
